FAERS Safety Report 10378222 (Version 3)
Quarter: 2016Q4

REPORT INFORMATION
  Report Type: Report from Study
  Country: GB (occurrence: GB)
  Receive Date: 20140812
  Receipt Date: 20161005
  Transmission Date: 20170206
  Serious: Yes (Hospitalization, Other)
  Sender: FDA-Public Use
  Company Number: GB-CELGENEUS-167-21880-14063410

PATIENT
  Age: 74 Year
  Sex: Female
  Weight: 63 kg

DRUGS (23)
  1. DEXAMETHASONE. [Suspect]
     Active Substance: DEXAMETHASONE
     Dosage: 800 MILLIGRAM
     Route: 048
     Dates: start: 20140521
  2. THALIDOMIDE [Suspect]
     Active Substance: THALIDOMIDE
     Indication: PLASMA CELL MYELOMA
     Dosage: 50 MILLIGRAM
     Route: 048
     Dates: start: 200506, end: 200511
  3. PROPANOLOL [Concomitant]
     Active Substance: PROPRANOLOL HYDROCHLORIDE
     Indication: PRODUCT USED FOR UNKNOWN INDICATION
     Dosage: 20 MILLIGRAM
     Route: 048
  4. PARACETAMOL [Concomitant]
     Active Substance: ACETAMINOPHEN
     Indication: PRODUCT USED FOR UNKNOWN INDICATION
     Route: 065
  5. REVLIMID [Suspect]
     Active Substance: LENALIDOMIDE
     Indication: PLASMA CELL MYELOMA
     Route: 048
     Dates: start: 20101025
  6. DEXAMETHASONE. [Suspect]
     Active Substance: DEXAMETHASONE
     Route: 065
     Dates: start: 200905, end: 200908
  7. THALIDOMIDE [Suspect]
     Active Substance: THALIDOMIDE
     Route: 048
     Dates: start: 200905, end: 200908
  8. DEXAMETHASONE. [Suspect]
     Active Substance: DEXAMETHASONE
     Route: 065
     Dates: start: 200501, end: 200506
  9. ACICLOVIR [Concomitant]
     Active Substance: ACYCLOVIR
     Indication: ANTIFUNGAL PROPHYLAXIS
     Dosage: 50 MILLIGRAM
     Route: 048
     Dates: start: 20130110
  10. OMEPRAZOLE. [Concomitant]
     Active Substance: OMEPRAZOLE
     Indication: GASTRITIS PROPHYLAXIS
     Dosage: 300 MILLIGRAM
     Route: 048
     Dates: start: 20130110
  11. DEXAMETHASONE. [Suspect]
     Active Substance: DEXAMETHASONE
     Indication: PLASMA CELL MYELOMA
     Dosage: 160 MILLIGRAM
     Route: 048
     Dates: start: 20101025
  12. QUININE [Concomitant]
     Active Substance: QUININE
     Indication: MUSCLE SPASMS
     Dosage: 75 MILLIGRAM
     Route: 048
  13. FLUCONAZOLE. [Concomitant]
     Active Substance: FLUCONAZOLE
     Indication: ANTIFUNGAL PROPHYLAXIS
     Route: 048
     Dates: start: 20130110
  14. FENTANYL. [Concomitant]
     Active Substance: FENTANYL
     Indication: PRODUCT USED FOR UNKNOWN INDICATION
     Dosage: 4 GRAM
     Route: 048
  15. ASPIRINE [Concomitant]
     Active Substance: ASPIRIN
     Indication: PRODUCT USED FOR UNKNOWN INDICATION
     Route: 048
  16. EPOETIN [Concomitant]
     Active Substance: ERYTHROPOIETIN
     Indication: PRODUCT USED FOR UNKNOWN INDICATION
     Route: 065
  17. REVLIMID [Suspect]
     Active Substance: LENALIDOMIDE
     Route: 048
     Dates: start: 20140521
  18. REVLIMID [Suspect]
     Active Substance: LENALIDOMIDE
     Route: 048
     Dates: end: 20140716
  19. DEXAMETHASONE. [Suspect]
     Active Substance: DEXAMETHASONE
     Route: 065
     Dates: start: 200804, end: 200808
  20. CYCLIZINE [Concomitant]
     Active Substance: CYCLIZINE
     Indication: PRODUCT USED FOR UNKNOWN INDICATION
     Route: 048
  21. DICLOFENAC [Concomitant]
     Active Substance: DICLOFENAC
     Indication: PRODUCT USED FOR UNKNOWN INDICATION
     Route: 065
  22. ECONAZOLE [Concomitant]
     Active Substance: ECONAZOLE
     Indication: ANTIFUNGAL PROPHYLAXIS
     Route: 048
     Dates: start: 20130207
  23. MAGNESIUM ASPARTATE [Concomitant]
     Active Substance: MAGNESIUM ASPARTATE
     Indication: PRODUCT USED FOR UNKNOWN INDICATION
     Route: 048
     Dates: start: 20140512

REACTIONS (2)
  - Myelodysplastic syndrome [Not Recovered/Not Resolved]
  - Urinary tract infection [Recovered/Resolved]

NARRATIVE: CASE EVENT DATE: 20140617
